FAERS Safety Report 4503696-9 (Version None)
Quarter: 2004Q3

REPORT INFORMATION
  Report Type: 
  Country: None (occurrence: None)
  Receive Date: 20040928
  Receipt Date: 20040603
  Transmission Date: 20050211
  Serious: No
  Sender: FDA-Public Use
  Company Number: 04P-163-0263193-00

PATIENT
  Age: 60 Year
  Sex: Female
  Weight: 76.2043 kg

DRUGS (8)
  1. HUMIRA [Suspect]
     Indication: RHEUMATOID ARTHRITIS
     Dosage: 40 MG, 1 IN 2 WK, SUBCUTANEOUS
     Route: 058
     Dates: start: 20030901, end: 20040501
  2. AZATHIOPRINE [Concomitant]
  3. HYDROXYCHLOROQUINE PHOSPHATE [Concomitant]
  4. PREDNISONE [Concomitant]
  5. SULFASALAZINE [Concomitant]
  6. ESTRADIOL [Concomitant]
  7. OMEPRAZOLE [Concomitant]
  8. MULTI-VITAMINS [Concomitant]

REACTIONS (3)
  - CONDITION AGGRAVATED [None]
  - SINUSITIS [None]
  - STAPHYLOCOCCAL INFECTION [None]
